FAERS Safety Report 9668204 (Version 2)
Quarter: 2013Q4

REPORT INFORMATION
  Report Type: Spontaneous
  Country: US (occurrence: US)
  Receive Date: 20131104
  Receipt Date: 20131211
  Transmission Date: 20140711
  Serious: Yes (Hospitalization)
  Sender: FDA-Public Use
  Company Number: US-BAXTER-2013BAX042686

PATIENT
  Sex: Male

DRUGS (6)
  1. DIANEAL PD2 [Suspect]
     Indication: RENAL FAILURE CHRONIC
     Route: 033
     Dates: start: 201302
  2. DIANEAL PD2 [Suspect]
     Route: 033
     Dates: start: 201302
  3. DIANEAL PD2 [Suspect]
     Route: 033
     Dates: start: 201302
  4. DIANEAL PD2 [Suspect]
     Route: 033
     Dates: start: 201308
  5. DIANEAL PD2 [Suspect]
     Route: 033
     Dates: start: 201308
  6. DIANEAL PD2 [Suspect]
     Route: 033
     Dates: start: 201308

REACTIONS (3)
  - Renal cancer [Recovered/Resolved]
  - Carcinoid tumour [Recovered/Resolved]
  - Peritoneal dialysis complication [Unknown]
